FAERS Safety Report 24318227 (Version 1)
Quarter: 2024Q3

REPORT INFORMATION
  Report Type: Spontaneous
  Country: US (occurrence: None)
  Receive Date: 20240912
  Receipt Date: 20240912
  Transmission Date: 20241017
  Serious: Yes (Life-Threatening, Hospitalization)
  Sender: Public
  Company Number: None

PATIENT
  Age: 56 Year
  Sex: Male
  Weight: 75.15 kg

DRUGS (2)
  1. HUMANIN [Suspect]
     Active Substance: HUMANIN
     Dosage: 5 MG SUBCUTANEOUS
     Route: 058
     Dates: start: 20240826, end: 20240830
  2. reconstitution solution distilled water [Concomitant]
     Dates: start: 20240826, end: 20240830

REACTIONS (7)
  - Dizziness [None]
  - Asthenia [None]
  - Vision blurred [None]
  - Facial paresis [None]
  - Paralysis [None]
  - Respiratory failure [None]
  - Botulism [None]

NARRATIVE: CASE EVENT DATE: 20240830
